FAERS Safety Report 4776050-2 (Version None)
Quarter: 2005Q3

REPORT INFORMATION
  Report Type: 
  Country: None (occurrence: None)
  Receive Date: 20050914
  Receipt Date: 20050329
  Transmission Date: 20060218
  Serious: Yes (Death)
  Sender: FDA-Public Use
  Company Number: 163-20785-05030772

PATIENT
  Age: 52 Year
  Sex: Male

DRUGS (2)
  1. THALOMID [Suspect]
     Indication: CHRONIC LYMPHOCYTIC LEUKAEMIA
     Dosage: 50 MG, DAILY, ORAL
     Route: 048
     Dates: start: 20040825, end: 20040826
  2. THALOMID [Suspect]
     Indication: CHRONIC LYMPHOCYTIC LEUKAEMIA
     Dosage: 50 MG, DAILY, ORAL
     Route: 048
     Dates: start: 20040920, end: 20041122

REACTIONS (3)
  - DEATH [None]
  - PNEUMONIA [None]
  - PYREXIA [None]
